FAERS Safety Report 5409273-X (Version None)
Quarter: 2007Q3

REPORT INFORMATION
  Report Type: 
  Country: None (occurrence: None)
  Receive Date: 20070809
  Receipt Date: 20070802
  Transmission Date: 20080115
  Serious: Yes (Hospitalization)
  Sender: FDA-Public Use
  Company Number: PHBS2007IN12942

PATIENT
  Age: 41 Year
  Sex: Female

DRUGS (5)
  1. SOLU-MEDROL [Concomitant]
  2. MYFORTIC [Concomitant]
  3. TACROLIMUS [Concomitant]
  4. NIFEDIPINE [Concomitant]
  5. SIMULECT [Suspect]
     Indication: RENAL TRANSPLANT
     Dosage: UNK, ONCE/SINGLE
     Route: 065

REACTIONS (3)
  - ANURIA [None]
  - RENAL IMPAIRMENT [None]
  - THROMBOTIC MICROANGIOPATHY [None]
